FAERS Safety Report 9006590 (Version 3)
Quarter: 2013Q1

REPORT INFORMATION
  Report Type: Spontaneous
  Country: US (occurrence: US)
  Receive Date: 20130110
  Receipt Date: 20130322
  Transmission Date: 20140127
  Serious: Yes (Death, Other)
  Sender: FDA-Public Use
  Company Number: US-PFIZER INC-2013006468

PATIENT
  Age: 45 Year
  Sex: Female

DRUGS (12)
  1. HYDROXYZINE PAMOATE [Suspect]
     Dosage: UNK
     Route: 048
  2. GABAPENTIN [Suspect]
     Dosage: UNK
     Route: 048
  3. DEXTROMETHORPHAN HBR [Suspect]
     Dosage: UNK
     Route: 048
  4. ALPRAZOLAM [Suspect]
     Dosage: UNK
     Route: 048
  5. LORAZEPAM [Suspect]
     Dosage: UNK
     Route: 048
  6. ZOLPIDEM [Suspect]
     Dosage: UNK
     Route: 048
  7. HYDROMORPHONE [Suspect]
     Dosage: UNK
     Route: 048
  8. MIRTAZAPINE [Suspect]
     Dosage: UNK
     Route: 048
  9. DIPHENHYDRAMINE [Suspect]
     Dosage: UNK
     Route: 048
  10. PROMETHAZINE [Suspect]
     Dosage: UNK
     Route: 048
  11. FLUOXETINE HYDROCHLORIDE [Suspect]
     Dosage: UNK
     Route: 048
  12. ACETAMINOPHEN W/HYDROCODONE BITARTRATE [Suspect]
     Dosage: UNK
     Route: 048

REACTIONS (3)
  - Drug abuse [Fatal]
  - Cardiac arrest [Fatal]
  - Respiratory arrest [Fatal]
